FAERS Safety Report 11116239 (Version 4)
Quarter: 2015Q4

REPORT INFORMATION
  Report Type: Report from Study
  Country: US (occurrence: US)
  Receive Date: 20150515
  Receipt Date: 20151124
  Transmission Date: 20160304
  Serious: Yes (Other)
  Sender: FDA-Public Use
  Company Number: US-SA-2015SA016515

PATIENT
  Age: 59 Year
  Sex: Female
  Weight: 72.1 kg

DRUGS (6)
  1. AUBAGIO [Suspect]
     Active Substance: TERIFLUNOMIDE
     Indication: MULTIPLE SCLEROSIS
     Route: 048
     Dates: start: 20141014
  2. REBIF [Concomitant]
     Active Substance: INTERFERON BETA-1A
     Indication: MULTIPLE SCLEROSIS
     Dates: start: 20120101, end: 20141010
  3. PROVIGIL [Concomitant]
     Active Substance: MODAFINIL
  4. ZANAFLEX [Concomitant]
     Active Substance: TIZANIDINE HYDROCHLORIDE
     Dosage: TAB 1 OR 2 PRN
  5. TEGRETOL [Concomitant]
     Active Substance: CARBAMAZEPINE
     Dosage: TWO IN AM ONE AT NOON AND TWO?AT HS
  6. ENALAPRIL [Concomitant]
     Active Substance: ENALAPRIL
     Dosage: DOSE: 10-25?TAB 1 IN AM

REACTIONS (8)
  - Intervertebral disc protrusion [Not Recovered/Not Resolved]
  - Blood pressure increased [Not Recovered/Not Resolved]
  - Sinusitis [Recovering/Resolving]
  - Neurosurgery [Unknown]
  - Bronchitis [Recovering/Resolving]
  - Diarrhoea [Not Recovered/Not Resolved]
  - Nasopharyngitis [Recovering/Resolving]
  - Cough [Recovering/Resolving]

NARRATIVE: CASE EVENT DATE: 20150223
